FAERS Safety Report 18064294 (Version 1)
Quarter: 2020Q3

REPORT INFORMATION
  Report Type: Spontaneous
  Country: US (occurrence: US)
  Receive Date: 20200723
  Receipt Date: 20200723
  Transmission Date: 20201103
  Serious: Yes (Death, Other)
  Sender: FDA-Public Use
  Company Number: None

PATIENT
  Age: 73 Year
  Sex: Male
  Weight: 122.5 kg

DRUGS (2)
  1. TOCLIZUMAB [Concomitant]
     Dates: start: 20200722, end: 20200722
  2. REMDESIVIR FOR INJECTION [Suspect]
     Active Substance: REMDESIVIR
     Indication: COVID-19
     Route: 042
     Dates: start: 20200715, end: 20200719

REACTIONS (2)
  - Haemodialysis [None]
  - Renal impairment [None]

NARRATIVE: CASE EVENT DATE: 20200721
